FAERS Safety Report 7269672-0 (Version None)
Quarter: 2011Q1

REPORT INFORMATION
  Report Type: 
  Country: None (occurrence: None)
  Receive Date: 20110202
  Receipt Date: 20110127
  Transmission Date: 20110831
  Serious: Yes (Death, Life-Threatening, Other)
  Sender: FDA-Public Use
  Company Number: JP-ELI_LILLY_AND_COMPANY-JP201011002062

PATIENT
  Age: 18 Year
  Sex: Female
  Weight: 52.8 kg

DRUGS (9)
  1. ALDACTONE [Concomitant]
     Dosage: 25 MG, DAILY (1/D)
     Route: 048
     Dates: start: 20100207, end: 20100208
  2. RASENAZOLIN [Concomitant]
     Indication: DEVICE RELATED INFECTION
     Dosage: 3 G, DAILY (1/D)
     Route: 065
     Dates: start: 20100202, end: 20100207
  3. TADALAFIL [Suspect]
     Indication: PULMONARY ARTERIAL HYPERTENSION
     Dosage: 20 MG, DAILY (1/D)
     Route: 048
     Dates: start: 20100204, end: 20100208
  4. PRIMPERAN TAB [Concomitant]
     Indication: DECREASED APPETITE
     Dosage: 1.5 MG, DAILY (1/D)
     Route: 065
     Dates: start: 20100202, end: 20100203
  5. VANCOMYCIN [Concomitant]
     Indication: DEVICE RELATED INFECTION
     Dosage: 1250 MG, DAILY (1/D)
     Route: 042
     Dates: start: 20100207, end: 20100216
  6. DOBUTAMINE HCL [Concomitant]
     Indication: CARDIAC FAILURE
     Dosage: 77-365 MG, DAILY (1/D)
     Route: 042
     Dates: start: 20100126
  7. FLOLAN [Concomitant]
     Indication: PULMONARY ARTERIAL HYPERTENSION
     Dosage: 6-150 NG, DAILY (1/D)
     Route: 042
     Dates: start: 20100128
  8. LASIX [Concomitant]
     Indication: CARDIAC FAILURE
     Dosage: 10-20MG, DAILY (1/D)
     Route: 065
     Dates: start: 20100204
  9. ALDACTONE [Concomitant]
     Indication: CARDIAC FAILURE
     Dosage: 25 MG, DAILY (1/D)
     Route: 048
     Dates: end: 20100201

REACTIONS (4)
  - IRON DEFICIENCY ANAEMIA [None]
  - DISEASE PROGRESSION [None]
  - CARDIOGENIC SHOCK [None]
  - CARDIAC FAILURE [None]
